FAERS Safety Report 23712149 (Version 2)
Quarter: 2025Q2

REPORT INFORMATION
  Report Type: Report from Study
  Country: US (occurrence: US)
  Receive Date: 20240405
  Receipt Date: 20250603
  Transmission Date: 20250717
  Serious: Yes (Hospitalization, Other)
  Sender: TEVA
  Company Number: US-TEVA-VS-3156674

PATIENT
  Age: 84 Year
  Sex: Female

DRUGS (1)
  1. BOSENTAN [Suspect]
     Active Substance: BOSENTAN
     Indication: Pulmonary hypertension
     Route: 048
     Dates: start: 20190611

REACTIONS (5)
  - Dependence on oxygen therapy [Unknown]
  - Illness [Unknown]
  - Malaise [Unknown]
  - Pneumonia [Recovering/Resolving]
  - Chest pain [Recovering/Resolving]
